FAERS Safety Report 13144276 (Version 1)
Quarter: 2017Q1

REPORT INFORMATION
  Report Type: Spontaneous
  Country: US (occurrence: US)
  Receive Date: 20170124
  Receipt Date: 20170124
  Transmission Date: 20170428
  Serious: No
  Sender: FDA-Public Use
  Company Number: US-BAYER-2017-011027

PATIENT
  Sex: Female

DRUGS (1)
  1. BETACONNECT [Suspect]
     Active Substance: DEVICE
     Dosage: (WAS HANDLING THE PLACEBO TO SHOW HER MOTHER HOW TO USE)
     Dates: start: 20170115, end: 20170115

REACTIONS (2)
  - Injury associated with device [Recovered/Resolved]
  - Needle issue [None]

NARRATIVE: CASE EVENT DATE: 20170115
